FAERS Safety Report 6920873-8 (Version None)
Quarter: 2010Q3

REPORT INFORMATION
  Report Type: 
  Country: None (occurrence: None)
  Receive Date: 20100812
  Receipt Date: 20100809
  Transmission Date: 20110219
  Serious: Yes (Death)
  Sender: FDA-Public Use
  Company Number: US-CELGENEUS-163-21880-10071344

PATIENT
  Sex: Female

DRUGS (6)
  1. REVLIMID [Suspect]
     Indication: MULTIPLE MYELOMA
     Route: 048
     Dates: start: 20100601, end: 20100101
  2. REVLIMID [Suspect]
     Route: 048
     Dates: start: 20100301
  3. REVLIMID [Suspect]
     Route: 048
     Dates: start: 20070601
  4. ARIXTRA [Concomitant]
     Indication: PRODUCT USED FOR UNKNOWN INDICATION
     Route: 058
  5. CELEXA [Concomitant]
     Indication: PRODUCT USED FOR UNKNOWN INDICATION
     Route: 048
  6. OXYCODONE HCL [Concomitant]
     Indication: PAIN
     Route: 048

REACTIONS (1)
  - DISEASE PROGRESSION [None]
